FAERS Safety Report 9302139 (Version 5)
Quarter: 2013Q3

REPORT INFORMATION
  Report Type: Spontaneous
  Country: JP (occurrence: JP)
  Receive Date: 20130522
  Receipt Date: 20130909
  Transmission Date: 20140515
  Serious: Yes (Hospitalization)
  Sender: FDA-Public Use
  Company Number: JP-B.I. PHARMACEUTICALS,INC./RIDGEFIELD-2013-BI-13852NB

PATIENT
  Age: 75 Year
  Sex: Male

DRUGS (5)
  1. PRAZAXA [Suspect]
     Indication: ATRIAL FIBRILLATION
     Dosage: 220 MG
     Route: 048
     Dates: end: 20130513
  2. ARTIST [Suspect]
     Indication: ATRIAL FIBRILLATION
     Dosage: 1.25 MG
     Route: 048
  3. DIOVAN [Suspect]
     Indication: BLOOD PRESSURE MANAGEMENT
     Dosage: 40 MG
     Route: 048
  4. LASIX [Suspect]
     Indication: CARDIAC FAILURE CHRONIC
     Dosage: 10 MG
     Route: 048
  5. LANSOPRAZOLE-OD [Suspect]
     Indication: GASTROOESOPHAGEAL REFLUX DISEASE
     Dosage: 15 MCG
     Route: 048

REACTIONS (3)
  - Cerebral infarction [Not Recovered/Not Resolved]
  - Cell marker increased [Unknown]
  - Drug effect incomplete [Unknown]
